FAERS Safety Report 17428154 (Version 1)
Quarter: 2020Q1

REPORT INFORMATION
  Report Type: Spontaneous
  Country: CA (occurrence: CA)
  Receive Date: 20200217
  Receipt Date: 20200217
  Transmission Date: 20200409
  Serious: Yes (Death, Hospitalization, Other)
  Sender: FDA-Public Use
  Company Number: CA-PURDUE PHARMA-CAN-2020-0010610

PATIENT
  Age: 77 Year
  Sex: Male

DRUGS (7)
  1. SANDOSTATIN [Suspect]
     Active Substance: OCTREOTIDE ACETATE
     Indication: CARCINOID TUMOUR
     Dosage: 40 MG, MONTHLY (1 EVERY 1 MONTHS)
     Route: 030
  2. SANDOSTATIN [Suspect]
     Active Substance: OCTREOTIDE ACETATE
     Dosage: 30 MG, MONTHLY (1 EVERY 1 MONTHS)
     Route: 030
  3. SANDOSTATIN [Suspect]
     Active Substance: OCTREOTIDE ACETATE
     Dosage: 40 MG, MONTHLY (1 EVERY 1 MONTHS)
     Route: 030
  4. MORPHINE SULFATE. [Suspect]
     Active Substance: MORPHINE SULFATE
     Indication: PRODUCT USED FOR UNKNOWN INDICATION
     Dosage: UNK
     Route: 065
  5. AFINITOR [Suspect]
     Active Substance: EVEROLIMUS
     Indication: PANCREATIC NEUROENDOCRINE TUMOUR
     Dosage: 10 MG, DAILY (1 EVERY 1 DAYS)
     Route: 030
  6. SANDOSTATIN [Suspect]
     Active Substance: OCTREOTIDE ACETATE
     Dosage: 20 MG, MONTHLY (1 EVERY 1 MONTHS)
     Route: 030
  7. SANDOSTATIN [Suspect]
     Active Substance: OCTREOTIDE ACETATE
     Dosage: 40 MG, MONTHLY (1 EVERY 1 MONTHS)
     Route: 030

REACTIONS (10)
  - Nausea [Fatal]
  - Needle issue [Fatal]
  - Death [Fatal]
  - Decreased appetite [Fatal]
  - Dizziness [Fatal]
  - Asthenia [Fatal]
  - Blood urine present [Fatal]
  - Intestinal obstruction [Fatal]
  - Prostate infection [Fatal]
  - Pneumonia [Fatal]
